FAERS Safety Report 20038114 (Version 1)
Quarter: 2021Q4

REPORT INFORMATION
  Report Type: Spontaneous
  Country: IT (occurrence: IT)
  Receive Date: 20211105
  Receipt Date: 20211105
  Transmission Date: 20220303
  Serious: Yes (Death, Hospitalization, Other)
  Sender: FDA-Public Use
  Company Number: IT-ADIENNEP-2021AD000425

PATIENT
  Age: 46 Year
  Sex: Male

DRUGS (12)
  1. BUSULFAN [Suspect]
     Active Substance: BUSULFAN
     Indication: Allogenic stem cell transplantation
     Dosage: UNK
  2. BUSULFAN [Suspect]
     Active Substance: BUSULFAN
     Indication: Bone marrow conditioning regimen
  3. BUSULFAN [Suspect]
     Active Substance: BUSULFAN
     Indication: Aplastic anaemia
  4. FLUDARABINE [Suspect]
     Active Substance: FLUDARABINE PHOSPHATE
     Indication: Allogenic stem cell transplantation
     Dosage: UNK
  5. CYCLOSPORINE [Suspect]
     Active Substance: CYCLOSPORINE
     Indication: Immunosuppressant drug therapy
     Dosage: UNK
  6. CYCLOSPORINE [Suspect]
     Active Substance: CYCLOSPORINE
     Indication: Aplastic anaemia
  7. THIOTEPA [Suspect]
     Active Substance: THIOTEPA
     Indication: Allogenic stem cell transplantation
     Dosage: UNK
  8. THIOTEPA [Suspect]
     Active Substance: THIOTEPA
     Indication: Aplastic anaemia
  9. THIOTEPA [Suspect]
     Active Substance: THIOTEPA
     Indication: Bone marrow conditioning regimen
  10. DEFIBROTIDE [Suspect]
     Active Substance: DEFIBROTIDE (BOVINE)
     Indication: Venoocclusive liver disease
     Dosage: DAY 12 TO DAY 22
  11. FLUDARABINE PHOSPHATE [Suspect]
     Active Substance: FLUDARABINE PHOSPHATE
     Indication: Bone marrow conditioning regimen
     Dosage: UNK
  12. FLUDARABINE PHOSPHATE [Suspect]
     Active Substance: FLUDARABINE PHOSPHATE
     Indication: Aplastic anaemia

REACTIONS (24)
  - Sepsis [Fatal]
  - Cardiac arrest [Fatal]
  - Jejunal ulcer [Fatal]
  - Epstein-Barr virus infection [Fatal]
  - Mucocutaneous ulceration [Fatal]
  - Apoptosis [Fatal]
  - Duodenal ulcer [Fatal]
  - Condition aggravated [Fatal]
  - Melaena [Fatal]
  - Off label use [Fatal]
  - Hyperplasia [Fatal]
  - Intestinal haemorrhage [Fatal]
  - Duodenitis [Fatal]
  - Pyrexia [Fatal]
  - Tachycardia [Fatal]
  - Hypotension [Fatal]
  - Enterocolitis viral [Fatal]
  - Mucosal erosion [Fatal]
  - Rectal haemorrhage [Fatal]
  - Epstein Barr virus positive mucocutaneous ulcer [Fatal]
  - Acute graft versus host disease in intestine [Unknown]
  - Venoocclusive liver disease [Recovered/Resolved]
  - Epstein-Barr viraemia [Unknown]
  - Hypotension [Unknown]
